FAERS Safety Report 8986703 (Version 2)
Quarter: 2015Q1

REPORT INFORMATION
  Report Type: Report from Study
  Country: SE (occurrence: SE)
  Receive Date: 20121226
  Receipt Date: 20150216
  Transmission Date: 20150721
  Serious: Yes (Other)
  Sender: FDA-Public Use
  Company Number: SE-ROCHE-1163298

PATIENT
  Age: 88 Year
  Sex: Female

DRUGS (7)
  1. IMDUR [Concomitant]
     Active Substance: ISOSORBIDE MONONITRATE
     Route: 065
     Dates: start: 20120815
  2. RANIBIZUMAB [Suspect]
     Active Substance: RANIBIZUMAB
     Indication: RETINAL NEOVASCULARISATION
     Dosage: TOTAL 9 INJECTIONS RECIEVED
     Route: 050
     Dates: start: 20120312
  3. ALVEDON [Concomitant]
     Active Substance: ACETAMINOPHEN
     Route: 065
     Dates: start: 20120814
  4. FURIX [Concomitant]
     Active Substance: FUROSEMIDE
     Route: 065
     Dates: start: 20100906
  5. CLOPIDOGREL [Concomitant]
     Active Substance: CLOPIDOGREL BISULFATE
     Route: 065
     Dates: start: 20120804
  6. TROMBYL [Concomitant]
     Active Substance: ASPIRIN
     Route: 065
     Dates: start: 20100908
  7. LOSARTAN [Concomitant]
     Active Substance: LOSARTAN
     Route: 065
     Dates: start: 20121120

REACTIONS (2)
  - Vitreous detachment [Recovered/Resolved]
  - Visual acuity reduced [Unknown]

NARRATIVE: CASE EVENT DATE: 20120615
